FAERS Safety Report 4681077-5 (Version None)
Quarter: 2005Q2

REPORT INFORMATION
  Report Type: 
  Country: None (occurrence: None)
  Receive Date: 20050603
  Receipt Date: 20050405
  Transmission Date: 20051028
  Serious: Yes (Other)
  Sender: FDA-Public Use
  Company Number: FR-GLAXOSMITHKLINE-B0376943A

PATIENT
  Age: 16 Year
  Sex: Male
  Weight: 62 kg

DRUGS (3)
  1. SERETIDE [Suspect]
     Indication: ASTHMA
     Dosage: 1PUFF SINGLE DOSE
     Route: 055
     Dates: start: 20050324, end: 20050324
  2. SINGULAIR [Concomitant]
     Indication: ASTHMA
     Dosage: 10MG PER DAY
     Route: 048
  3. VENTOLIN [Concomitant]
     Indication: ASTHMA
     Route: 055

REACTIONS (9)
  - ANAPHYLACTIC SHOCK [None]
  - EYE DISORDER [None]
  - HYPOTENSION [None]
  - MALAISE [None]
  - NAUSEA [None]
  - TACHYCARDIA [None]
  - TINNITUS [None]
  - TREMOR [None]
  - VERTIGO [None]
